FAERS Safety Report 6615130-3 (Version None)
Quarter: 2010Q1

REPORT INFORMATION
  Report Type: 
  Country: None (occurrence: None)
  Receive Date: 20100305
  Receipt Date: 20100226
  Transmission Date: 20100710
  Serious: Yes (Other)
  Sender: FDA-Public Use
  Company Number: IT-BRISTOL-MYERS SQUIBB COMPANY-14997167

PATIENT
  Age: 79 Year
  Sex: Female

DRUGS (7)
  1. COUMADIN [Suspect]
     Indication: ATRIAL FIBRILLATION
     Dosage: INTERRUPTED ON 11FEB2010
     Route: 048
     Dates: start: 20040817
  2. TAVANIC [Suspect]
     Indication: BRONCHITIS
     Dosage: FILM COATED TABLETS. INTERRUPTED ON 11FEB2010
     Route: 048
     Dates: start: 20100205, end: 20100211
  3. LANSOPRAZOLE [Concomitant]
     Dosage: VIAL
     Route: 048
  4. FLUIMUCIL [Concomitant]
     Dosage: EFFERVESCENT TABS.
     Route: 048
     Dates: start: 20100205, end: 20100211
  5. DILTIAZEM HCL [Concomitant]
     Dosage: MODIFIED RELEASE TABS
     Route: 048
  6. TRIATEC [Concomitant]
     Route: 048
  7. EUTIROX [Concomitant]
     Dosage: TABS
     Route: 048

REACTIONS (2)
  - BRONCHITIS [None]
  - INTERNATIONAL NORMALISED RATIO INCREASED [None]
